FAERS Safety Report 8923278 (Version 1)
Quarter: 2012Q4

REPORT INFORMATION
  Report Type: 
  Country: DK (occurrence: DK)
  Receive Date: 20121124
  Receipt Date: 20121124
  Transmission Date: 20130627
  Serious: Yes (Other)
  Sender: FDA-Public Use
  Company Number: PHHY2012DK106565

PATIENT
  Age: 57 Year
  Sex: Female

DRUGS (8)
  1. VINORELBINE TARTRATE [Suspect]
     Indication: BREAST CANCER
     Dates: start: 20121026
  2. OXALIPLATIN [Suspect]
     Indication: BREAST CANCER
  3. HERCEPTIN [Suspect]
     Indication: BREAST CANCER
  4. XELODA [Suspect]
     Indication: BREAST CANCER
  5. TAXOL [Suspect]
     Indication: BREAST CANCER
  6. ARIMIDEX [Suspect]
     Indication: BREAST CANCER
  7. ZOLADEX [Suspect]
     Indication: BREAST CANCER
  8. FASLODEX [Suspect]
     Indication: BREAST CANCER

REACTIONS (2)
  - Metastases to liver [Unknown]
  - Cardiotoxicity [Unknown]
